FAERS Safety Report 24217550 (Version 5)
Quarter: 2024Q4

REPORT INFORMATION
  Report Type: Spontaneous
  Country: CA (occurrence: CA)
  Receive Date: 20240816
  Receipt Date: 20241127
  Transmission Date: 20250115
  Serious: Yes (Hospitalization, Other)
  Sender: PFIZER
  Company Number: CA-PFIZER INC-202300289174

PATIENT
  Age: 12 Year
  Sex: Male

DRUGS (2)
  1. ABRILADA [Suspect]
     Active Substance: ADALIMUMAB-AFZB
     Indication: Colitis ulcerative
     Dosage: 1 DF, WEEK 0 -160 MG, WEEK 2 -80 MG, THEN 40 MG EVERY OTHER WEEK STARTING WEEK 4 -INJECTION SOLUTION
     Route: 058
     Dates: start: 20230504, end: 2023
  2. ABRILADA [Suspect]
     Active Substance: ADALIMUMAB-AFZB
     Dosage: 40 MG, WEEKLY, INJECTION SOLUTION
     Route: 058
     Dates: start: 2023

REACTIONS (4)
  - Tibia fracture [Unknown]
  - Varicella [Unknown]
  - Off label use [Unknown]
  - Product dose omission in error [Unknown]

NARRATIVE: CASE EVENT DATE: 20230504
